FAERS Safety Report 13181257 (Version 1)
Quarter: 2017Q1

REPORT INFORMATION
  Report Type: Spontaneous
  Country: US (occurrence: US)
  Receive Date: 20170202
  Receipt Date: 20170202
  Transmission Date: 20170428
  Serious: No
  Sender: FDA-Public Use
  Company Number: US-SMITH AND NEPHEW, INC-2016SMT01080

PATIENT
  Age: 95 Year
  Sex: Male
  Weight: 77.98 kg

DRUGS (5)
  1. UNSPECIFIED INSULIN PRODUCT [Concomitant]
  2. UNSPECIFIED PROSTATE CANCER MEDICATION [Concomitant]
  3. REGRANEX [Suspect]
     Active Substance: BECAPLERMIN
     Indication: WOUND
     Dosage: UNK UNK, 1X/DAY
     Route: 061
     Dates: start: 201610
  4. UNSPECIFIED CHOLESTEROL MEDICATION [Concomitant]
     Active Substance: UNSPECIFIED INGREDIENT
  5. ASPIRIN. [Concomitant]
     Active Substance: ASPIRIN

REACTIONS (2)
  - Bronchitis [Recovering/Resolving]
  - Wound secretion [Recovered/Resolved]

NARRATIVE: CASE EVENT DATE: 201611
